FAERS Safety Report 10573383 (Version 1)
Quarter: 2014Q4

REPORT INFORMATION
  Report Type: Spontaneous
  Country: CN (occurrence: None)
  Receive Date: 20141030
  Receipt Date: 20141030
  Transmission Date: 20150529
  Serious: Yes (Hospitalization)
  Sender: FDA-Public Use
  Company Number: PHHY2013CN124660

PATIENT
  Age: 26 Year
  Sex: Male
  Weight: 50 kg

DRUGS (4)
  1. ALKYLATING AGENTS (NO INGREDIENTS/SUBSTANCES) [Concomitant]
  2. METHYLPREDNISOLONE. [Concomitant]
     Active Substance: METHYLPREDNISOLONE
  3. TELBIVUDINE [Suspect]
     Active Substance: TELBIVUDINE
     Indication: VIRAL INFECTION
     Route: 048
     Dates: start: 20110701, end: 20120618
  4. PLASMAPHERESIS (NO INGREDIENTS/SUBSTANCES) [Concomitant]

REACTIONS (1)
  - Lactic acidosis [None]

NARRATIVE: CASE EVENT DATE: 20120710
